FAERS Safety Report 4978993-3 (Version None)
Quarter: 2006Q2

REPORT INFORMATION
  Report Type: 
  Country: None (occurrence: None)
  Receive Date: 20060421
  Receipt Date: 20060410
  Transmission Date: 20061013
  Serious: Yes (Death, Hospitalization)
  Sender: FDA-Public Use
  Company Number: FR-BRISTOL-MYERS SQUIBB COMPANY-13342043

PATIENT
  Age: 95 Year
  Sex: Male

DRUGS (8)
  1. COUMADIN [Suspect]
     Indication: ATRIAL FIBRILLATION
     Route: 048
     Dates: start: 20060109, end: 20060212
  2. COUMADIN [Suspect]
     Indication: ATRIAL FLUTTER
     Route: 048
     Dates: start: 20060109, end: 20060212
  3. DIGOXIN [Concomitant]
     Dates: end: 20060113
  4. CORDARONE [Concomitant]
     Dates: start: 20060106, end: 20060110
  5. CALCIPARINE [Concomitant]
     Indication: ANTICOAGULANT THERAPY
  6. NITRODERM [Concomitant]
     Indication: CARDIAC FAILURE
     Dates: start: 20060101
  7. LASILIX [Concomitant]
     Indication: CARDIAC FAILURE
     Dates: start: 20051229
  8. TRIATEC [Concomitant]
     Dates: start: 20060104

REACTIONS (5)
  - ANAEMIA [None]
  - CARDIAC FAILURE [None]
  - DIARRHOEA [None]
  - HAEMATOMA [None]
  - PROTHROMBIN TIME RATIO DECREASED [None]
